FAERS Safety Report 6642470-4 (Version None)
Quarter: 2010Q1

REPORT INFORMATION
  Report Type: 
  Country: None (occurrence: None)
  Receive Date: 20100319
  Receipt Date: 20100306
  Transmission Date: 20100710
  Serious: Yes (Hospitalization)
  Sender: FDA-Public Use
  Company Number: US-ROCHE-691801

PATIENT
  Sex: Male
  Weight: 85.2 kg

DRUGS (15)
  1. BEVACIZUMAB [Suspect]
     Indication: GLIOBLASTOMA
     Route: 042
     Dates: start: 20090309, end: 20091204
  2. BEVACIZUMAB [Suspect]
     Dosage: START DATE REPORTED: 12 NOVEMBER 2009
     Route: 042
     Dates: end: 20100302
  3. ERLOTINIB [Suspect]
     Indication: GLIOBLASTOMA
     Dosage: FREQUENCY: DAILY
     Route: 048
     Dates: start: 20091105, end: 20091118
  4. ERLOTINIB [Suspect]
     Dosage: FREQUENCY: QD
     Route: 048
     Dates: start: 20091119, end: 20100117
  5. TEMOZOLOMIDE [Suspect]
     Indication: GLIOBLASTOMA
     Dosage: FREQUENCY: D1-5
     Route: 048
     Dates: start: 20100105, end: 20100303
  6. COLACE [Concomitant]
     Dates: start: 20091101
  7. KEPPRA [Concomitant]
     Dates: start: 20091028
  8. SENNA [Concomitant]
  9. MIRALAX [Concomitant]
     Dates: start: 20091112
  10. BENADRYL [Concomitant]
     Dates: start: 20091121
  11. AMBIEN [Concomitant]
     Dates: start: 20091021
  12. HYDROCORTISONE [Concomitant]
     Dates: start: 20091117
  13. HYDROXYZINE [Concomitant]
     Dates: start: 20100122
  14. CLINDAMYCIN [Concomitant]
  15. BACTRIM [Concomitant]
     Dates: start: 20100303

REACTIONS (3)
  - CONVULSION [None]
  - HYPERSENSITIVITY [None]
  - PYREXIA [None]
